FAERS Safety Report 16813432 (Version 1)
Quarter: 2019Q3

REPORT INFORMATION
  Report Type: Spontaneous
  Country: FR (occurrence: FR)
  Receive Date: 20190917
  Receipt Date: 20190917
  Transmission Date: 20191005
  Serious: Yes (Other)
  Sender: FDA-Public Use
  Company Number: PHHY2019FR211338

PATIENT
  Age: 62 Year
  Sex: Male
  Weight: 82 kg

DRUGS (6)
  1. ESIDREX [Suspect]
     Active Substance: HYDROCHLOROTHIAZIDE
     Indication: HYPERTENSION
     Dosage: 1 DF, QD
     Route: 048
  2. ZANEXTRA [Suspect]
     Active Substance: ENALAPRIL MALEATE\LERCANIDIPINE HYDROCHLORIDE
     Indication: HYPERTENSION
     Dosage: 1 DF, QD
     Route: 048
  3. AMOXICILLIN AND CLAVULANATE POTASSIUM [Suspect]
     Active Substance: AMOXICILLIN\CLAVULANATE POTASSIUM
     Indication: EAR INFECTION
     Dosage: 6 DF, QD
     Route: 048
     Dates: start: 20190808, end: 20190815
  4. EUPRESSYL [Suspect]
     Active Substance: URAPIDIL
     Indication: HYPERTENSION
     Dosage: 1 DF, QD
     Route: 048
     Dates: start: 20190808
  5. FEBUXOSTAT. [Suspect]
     Active Substance: FEBUXOSTAT
     Indication: GOUT
     Dosage: 1 DF, QD
     Route: 048
     Dates: start: 20190809, end: 20190816
  6. PREDNISOLONE. [Suspect]
     Active Substance: PREDNISOLONE
     Indication: EAR INFECTION
     Dosage: 2 DF, QD
     Route: 048
     Dates: start: 20190808, end: 20190813

REACTIONS (4)
  - Rash [Not Recovered/Not Resolved]
  - Pruritus [Recovered/Resolved]
  - Pain [Not Recovered/Not Resolved]
  - Paraesthesia [Not Recovered/Not Resolved]

NARRATIVE: CASE EVENT DATE: 20190816
